FAERS Safety Report 9706861 (Version 2)
Quarter: 2013Q4

REPORT INFORMATION
  Report Type: Spontaneous
  Country: US (occurrence: US)
  Receive Date: 20131125
  Receipt Date: 20131210
  Transmission Date: 20140711
  Serious: Yes (Other)
  Sender: FDA-Public Use
  Company Number: US-JNJFOC-20131110726

PATIENT
  Age: 73 Year
  Sex: Female
  Weight: 47.63 kg

DRUGS (6)
  1. REMICADE [Suspect]
     Indication: PSORIATIC ARTHROPATHY
     Dosage: SECOND INFUSION.
     Route: 042
     Dates: start: 20131118
  2. REMICADE [Suspect]
     Indication: PSORIATIC ARTHROPATHY
     Route: 042
     Dates: start: 20131111
  3. REMICADE [Suspect]
     Indication: PSORIATIC ARTHROPATHY
     Route: 042
     Dates: start: 20131028
  4. REMICADE [Suspect]
     Indication: PSORIASIS
     Dosage: SECOND INFUSION.
     Route: 042
     Dates: start: 20131118
  5. REMICADE [Suspect]
     Indication: PSORIASIS
     Route: 042
     Dates: start: 20131111
  6. REMICADE [Suspect]
     Indication: PSORIASIS
     Route: 042
     Dates: start: 20131028

REACTIONS (3)
  - Atrial fibrillation [Recovered/Resolved]
  - Liver function test abnormal [Unknown]
  - Cystitis [Unknown]
